FAERS Safety Report 7794322-4 (Version None)
Quarter: 2011Q4

REPORT INFORMATION
  Report Type: 
  Country: None (occurrence: None)
  Receive Date: 20111004
  Receipt Date: 20111001
  Transmission Date: 20120403
  Serious: Yes (Other)
  Sender: FDA-Public Use
  Company Number: US-PFIZER INC-2011234767

PATIENT
  Sex: Female
  Weight: 72.562 kg

DRUGS (2)
  1. VICOPROFEN [Concomitant]
     Indication: BACK PAIN
     Dosage: 7.5/200 MG AS NEEDED
     Route: 048
  2. CHANTIX [Suspect]
     Indication: SMOKING CESSATION THERAPY
     Dosage: 0.5 MG, 1X/DAY
     Route: 048
     Dates: start: 20110926

REACTIONS (2)
  - FATIGUE [None]
  - EYE SWELLING [None]
